FAERS Safety Report 8487647 (Version 3)
Quarter: 2012Q4

REPORT INFORMATION
  Report Type: 
  Country: US (occurrence: US)
  Receive Date: 20120402
  Receipt Date: 20121207
  Transmission Date: 20130627
  Serious: Yes (Other)
  Sender: FDA-Public Use
  Company Number: US-PFIZER INC-2011101052

PATIENT
  Age: 29 Year
  Sex: Female
  Weight: 72.56 kg

DRUGS (4)
  1. LYRICA [Suspect]
     Indication: FIBROMYALGIA
     Dosage: 300 mg am and 450 mg pm
  2. LYRICA [Suspect]
     Indication: CHRONIC FATIGUE
     Dosage: 300 mg, 2x/day
     Route: 048
     Dates: start: 2008, end: 201201
  3. LYRICA [Suspect]
     Dosage: 300 mg, 2x/day
     Route: 048
     Dates: start: 2012
  4. LYRICA [Suspect]
     Dosage: UNK

REACTIONS (9)
  - Withdrawal syndrome [Unknown]
  - Feeling abnormal [Recovered/Resolved]
  - Poor quality drug administered [Unknown]
  - Diarrhoea [Recovered/Resolved]
  - Vomiting [Recovered/Resolved]
  - Insomnia [Recovered/Resolved]
  - Hyperhidrosis [Recovered/Resolved]
  - Hot flush [Recovered/Resolved]
  - Weight decreased [Unknown]
